FAERS Safety Report 17412716 (Version 1)
Quarter: 2020Q1

REPORT INFORMATION
  Report Type: Spontaneous
  Country: US (occurrence: US)
  Receive Date: 20200212
  Receipt Date: 20200212
  Transmission Date: 20200409
  Serious: Yes (Other)
  Sender: FDA-Public Use
  Company Number: None

PATIENT
  Age: 73 Year
  Sex: Female
  Weight: 49.5 kg

DRUGS (1)
  1. LOTEMAX SM [Suspect]
     Active Substance: LOTEPREDNOL ETABONATE
     Indication: CATARACT
     Dosage: ?          QUANTITY:1 DROP(S);?
     Route: 047

REACTIONS (4)
  - Headache [None]
  - Pain [None]
  - Asthenia [None]
  - Nausea [None]

NARRATIVE: CASE EVENT DATE: 20200211
